FAERS Safety Report 20113347 (Version 1)
Quarter: 2021Q4

REPORT INFORMATION
  Report Type: Spontaneous
  Country: US (occurrence: None)
  Receive Date: 20211124
  Receipt Date: 20211124
  Transmission Date: 20220303
  Serious: No
  Sender: FDA-Public Use
  Company Number: None

PATIENT
  Age: 45 Year
  Sex: Female
  Weight: 102.6 kg

DRUGS (14)
  1. NUCALA [Suspect]
     Active Substance: MEPOLIZUMAB
     Indication: Asthma
     Dosage: OTHER QUANTITY : 1 INJECTION(S);?OTHER FREQUENCY : ONCE A MONTH;?
     Route: 030
  2. TOPIRAMATE [Concomitant]
     Active Substance: TOPIRAMATE
  3. IMITREX [Concomitant]
     Active Substance: SUMATRIPTAN SUCCINATE
  4. OMEPRAZOLE [Concomitant]
     Active Substance: OMEPRAZOLE
  5. nebulizer (when needed) [Concomitant]
  6. SYMBICORT [Concomitant]
     Active Substance: BUDESONIDE\FORMOTEROL FUMARATE DIHYDRATE
  7. ALBUTEROL [Concomitant]
     Active Substance: ALBUTEROL
  8. VALTREX [Concomitant]
     Active Substance: VALACYCLOVIR HYDROCHLORIDE
  9. ZAFIRLUKAST [Concomitant]
     Active Substance: ZAFIRLUKAST
  10. VITAMIN D [Concomitant]
     Active Substance: VITAMIN D NOS
  11. Women^s multi Vitamin [Concomitant]
  12. ASPIRIN [Concomitant]
     Active Substance: ASPIRIN
  13. ALEVE [Concomitant]
     Active Substance: NAPROXEN SODIUM
  14. IBUPROFEN [Concomitant]
     Active Substance: IBUPROFEN

REACTIONS (3)
  - Rash [None]
  - Tongue pruritus [None]
  - Pharyngeal swelling [None]

NARRATIVE: CASE EVENT DATE: 20211122
